FAERS Safety Report 7714949-5 (Version None)
Quarter: 2011Q3

REPORT INFORMATION
  Report Type: 
  Country: None (occurrence: None)
  Receive Date: 20110822
  Receipt Date: 20110804
  Transmission Date: 20111222
  Serious: Yes (Hospitalization)
  Sender: FDA-Public Use
  Company Number: 2011MA011377

PATIENT
  Age: 39 Year
  Sex: Female

DRUGS (1)
  1. OXYCODONE HCL [Suspect]
     Indication: HEMIPLEGIC MIGRAINE
     Dosage: 20 MG;QD

REACTIONS (6)
  - HYPOTENSION [None]
  - MENSTRUATION IRREGULAR [None]
  - GALACTORRHOEA [None]
  - SECONDARY ADRENOCORTICAL INSUFFICIENCY [None]
  - FATIGUE [None]
  - HYPERPROLACTINAEMIA [None]
